FAERS Safety Report 5321976-4 (Version None)
Quarter: 2007Q2

REPORT INFORMATION
  Report Type: 
  Country: None (occurrence: None)
  Receive Date: 20070511
  Receipt Date: 20070502
  Transmission Date: 20071010
  Serious: Yes (Hospitalization, Other)
  Sender: FDA-Public Use
  Company Number: PHEH2007US06036

PATIENT
  Age: 80 Year
  Sex: Female

DRUGS (2)
  1. ZELNORM [Suspect]
     Indication: CONSTIPATION
     Dosage: 6 MG, BID
     Route: 048
     Dates: start: 20060101, end: 20070331
  2. ANTIHYPERTENSIVES [Concomitant]

REACTIONS (8)
  - ANOSMIA [None]
  - CONCUSSION [None]
  - HYPERTENSION [None]
  - HYPOACUSIS [None]
  - HYPOGEUSIA [None]
  - LOSS OF CONSCIOUSNESS [None]
  - LUNG DISORDER [None]
  - MEMORY IMPAIRMENT [None]
